FAERS Safety Report 23233143 (Version 1)
Quarter: 2023Q4

REPORT INFORMATION
  Report Type: Spontaneous
  Country: JP (occurrence: JP)
  Receive Date: 20231128
  Receipt Date: 20231128
  Transmission Date: 20240110
  Serious: Yes (Other)
  Sender: FDA-Public Use
  Company Number: JP-BAUSCHBL-2023BNL012273

PATIENT
  Age: 10 Decade
  Sex: Male

DRUGS (6)
  1. BEPOTASTINE [Suspect]
     Active Substance: BEPOTASTINE
     Indication: Product used for unknown indication
     Route: 065
  2. DAPSONE [Suspect]
     Active Substance: DAPSONE
     Indication: Dermatitis exfoliative generalised
     Route: 065
  3. LEVOCETIRIZINE DIHYDROCHLORIDE [Concomitant]
     Active Substance: LEVOCETIRIZINE DIHYDROCHLORIDE
     Indication: Product used for unknown indication
  4. SUVOREXANT [Concomitant]
     Active Substance: SUVOREXANT
     Indication: Product used for unknown indication
  5. AMLODIPINE (AMLODIPINE BESILATE) [Concomitant]
     Indication: Product used for unknown indication
  6. CANDESARTAN CILEXETIL [Concomitant]
     Active Substance: CANDESARTAN CILEXETIL
     Indication: Product used for unknown indication

REACTIONS (2)
  - Haemolytic anaemia [Unknown]
  - Off label use [Unknown]
